FAERS Safety Report 5891738-8 (Version None)
Quarter: 2008Q3

REPORT INFORMATION
  Report Type: 
  Country: None (occurrence: None)
  Receive Date: 20080922
  Receipt Date: 20080910
  Transmission Date: 20090109
  Serious: Yes (Other)
  Sender: FDA-Public Use
  Company Number: US-PFIZER INC-2008060502

PATIENT
  Sex: Female
  Weight: 75 kg

DRUGS (10)
  1. LYRICA [Suspect]
     Indication: NEURALGIA
     Dosage: DAILY DOSE:150MG
     Route: 048
     Dates: start: 20080701
  2. LYRICA [Suspect]
     Indication: PAIN IN EXTREMITY
  3. AMBIEN [Concomitant]
  4. PROZAC [Concomitant]
  5. MOBIC [Concomitant]
  6. PRAVASTATIN [Concomitant]
  7. GENERAL NUTRIENTS [Concomitant]
  8. ACETYLSALICYLIC ACID SRT [Concomitant]
  9. VITAMIN B-12 [Concomitant]
  10. DIAZEPAM [Concomitant]

REACTIONS (4)
  - ACTIVITIES OF DAILY LIVING IMPAIRED [None]
  - DISTURBANCE IN ATTENTION [None]
  - SKIN ULCER [None]
  - WEIGHT INCREASED [None]
